FAERS Safety Report 16580128 (Version 1)
Quarter: 2019Q3

REPORT INFORMATION
  Report Type: Report from Study
  Country: IT (occurrence: IT)
  Receive Date: 20190716
  Receipt Date: 20190716
  Transmission Date: 20191004
  Serious: Yes (Other)
  Sender: FDA-Public Use
  Company Number: IT-PFIZER INC-2019296326

PATIENT
  Age: 17 Year
  Sex: Female

DRUGS (8)
  1. BACLOFEN. [Suspect]
     Active Substance: BACLOFEN
     Indication: ANALGESIC THERAPY
  2. SUFENTANIL CITRATE. [Suspect]
     Active Substance: SUFENTANIL CITRATE
     Indication: PAIN
     Dosage: 0.1-0.2UG/KG
     Route: 040
  3. MORPHINE [Suspect]
     Active Substance: MORPHINE
     Indication: ANALGESIC THERAPY
  4. BACLOFEN. [Suspect]
     Active Substance: BACLOFEN
     Indication: PAIN
     Dosage: UNK
     Route: 037
  5. KETAMINE [Suspect]
     Active Substance: KETAMINE
     Indication: PAIN
     Dosage: LOW DOSE
     Route: 042
  6. KETAMINE [Suspect]
     Active Substance: KETAMINE
     Indication: ANALGESIC THERAPY
     Dosage: NCA: BOLUS OF 0.02-0.04 MG/KG WITH A LOCKOUT TIME OF 20 MIN
  7. SUFENTANIL CITRATE. [Suspect]
     Active Substance: SUFENTANIL CITRATE
     Indication: ANALGESIC THERAPY
     Dosage: 0.2UG/KG/H
  8. MORPHINE [Suspect]
     Active Substance: MORPHINE
     Indication: PAIN
     Dosage: NCA: BOLUS OF 0.02-0.04 MG/KG WITH A LOCKOUT TIME OF 20 MIN

REACTIONS (2)
  - Respiratory depression [Unknown]
  - Sedation [Unknown]
